FAERS Safety Report 9900369 (Version 2)
Quarter: 2014Q2

REPORT INFORMATION
  Report Type: Spontaneous
  Country: GB (occurrence: GB)
  Receive Date: 20140216
  Receipt Date: 20140501
  Transmission Date: 20141212
  Serious: Yes (Life-Threatening, Hospitalization)
  Sender: FDA-Public Use
  Company Number: GB-JNJFOC-20140201609

PATIENT
  Age: 67 Year
  Sex: Male
  Weight: 75.29 kg

DRUGS (13)
  1. PARACETAMOL [Suspect]
     Route: 048
  2. PARACETAMOL [Suspect]
     Indication: PAIN
     Dosage: FOR 2 DAYS
     Route: 048
     Dates: start: 20140110
  3. PEMETREXED [Suspect]
     Indication: PRODUCT USED FOR UNKNOWN INDICATION
     Route: 065
     Dates: start: 20140110
  4. CARBOPLATIN [Suspect]
     Indication: LUNG ADENOCARCINOMA
     Route: 065
     Dates: start: 20130110
  5. SIMVASTATIN [Concomitant]
     Indication: PRODUCT USED FOR UNKNOWN INDICATION
     Dosage: WITHDRAWN ON ADMISSION
     Route: 065
  6. CYCLIZINE [Concomitant]
     Indication: PRODUCT USED FOR UNKNOWN INDICATION
     Route: 065
  7. CORSODYL [Concomitant]
     Indication: PRODUCT USED FOR UNKNOWN INDICATION
     Route: 065
  8. DEXAMETHASONE [Concomitant]
     Indication: PRODUCT USED FOR UNKNOWN INDICATION
     Route: 065
  9. ALENDRONATE [Concomitant]
     Indication: PRODUCT USED FOR UNKNOWN INDICATION
     Dosage: WITHDRAWN ON ADMISSION
     Route: 065
  10. NYSTATIN [Concomitant]
     Indication: PRODUCT USED FOR UNKNOWN INDICATION
     Route: 065
  11. OXYNORM [Concomitant]
     Indication: PRODUCT USED FOR UNKNOWN INDICATION
     Route: 065
  12. OXYCONTIN [Concomitant]
     Indication: PRODUCT USED FOR UNKNOWN INDICATION
     Route: 065
  13. LANSOPRAZOLE [Concomitant]
     Indication: PRODUCT USED FOR UNKNOWN INDICATION
     Dosage: WITHDRAWN ON ADMISSION
     Route: 065

REACTIONS (9)
  - Overdose [Unknown]
  - Renal failure acute [Not Recovered/Not Resolved]
  - Liver injury [Recovering/Resolving]
  - Vomiting [Unknown]
  - Jaundice [Unknown]
  - Diarrhoea [Unknown]
  - Urine output decreased [Unknown]
  - Neutropenia [Recovered/Resolved]
  - Acidosis [Unknown]
